FAERS Safety Report 9263458 (Version 1)
Quarter: 2013Q2

REPORT INFORMATION
  Report Type: Spontaneous
  Country: US (occurrence: US)
  Receive Date: 20130430
  Receipt Date: 20130430
  Transmission Date: 20140414
  Serious: Yes (Other)
  Sender: FDA-Public Use
  Company Number: US-ABBOTT-12P-163-0972440-00

PATIENT
  Sex: Female
  Weight: 39.04 kg

DRUGS (1)
  1. CREON [Suspect]
     Indication: CROHN^S DISEASE
     Dates: start: 2007, end: 2007

REACTIONS (2)
  - Anaphylactic reaction [Recovered/Resolved]
  - Urticaria [Recovered/Resolved]
